FAERS Safety Report 7327177-2 (Version None)
Quarter: 2011Q1

REPORT INFORMATION
  Report Type: 
  Country: None (occurrence: None)
  Receive Date: 20110218
  Receipt Date: 20110208
  Transmission Date: 20110831
  Serious: Yes (Hospitalization)
  Sender: FDA-Public Use
  Company Number: 2011000653

PATIENT
  Age: 43 Year
  Sex: Male

DRUGS (1)
  1. TARCEVA [Suspect]
     Indication: NON-SMALL CELL LUNG CANCER
     Dosage: (150 MG, QD), ORAL
     Route: 048
     Dates: start: 20100917

REACTIONS (4)
  - PANCREATITIS ACUTE [None]
  - PITUITARY CYST [None]
  - TUMOUR MARKER INCREASED [None]
  - EOSINOPHIL COUNT INCREASED [None]
